FAERS Safety Report 8894027 (Version 5)
Quarter: 2013Q4

REPORT INFORMATION
  Report Type: Report from Study
  Country: FR (occurrence: FR)
  Receive Date: 20121108
  Receipt Date: 20131031
  Transmission Date: 20140711
  Serious: Yes (Hospitalization, Other)
  Sender: FDA-Public Use
  Company Number: FR-MPIJNJ-2012-07278

PATIENT
  Sex: 0

DRUGS (7)
  1. VELCADE [Suspect]
     Indication: MANTLE CELL LYMPHOMA
     Dosage: 2.25 MG, UNK
     Route: 058
     Dates: start: 20121008, end: 20121011
  2. LEVACT [Suspect]
     Indication: MANTLE CELL LYMPHOMA
     Dosage: 157 MG, UNK
     Route: 042
     Dates: start: 20121008, end: 20121009
  3. MABTHERA [Suspect]
     Indication: MANTLE CELL LYMPHOMA
     Dosage: 652 MG, UNK
     Route: 042
     Dates: start: 20121008, end: 20121011
  4. DEXAMETHASONE [Suspect]
     Indication: MANTLE CELL LYMPHOMA
     Dosage: 40 MG, UNK
     Dates: start: 20121009
  5. KARDEGIC                           /00002703/ [Concomitant]
     Indication: THROMBOSIS PROPHYLAXIS
     Dosage: 75 MG, UNK
     Route: 048
     Dates: start: 20121008
  6. VALACICLOVIR [Concomitant]
     Indication: INFECTION PROPHYLAXIS
     Dosage: 500 MG, UNK
     Route: 048
     Dates: start: 20121009
  7. SOLUMEDROL [Concomitant]
     Dosage: 69.60 MG, UNK
     Dates: start: 20121008

REACTIONS (3)
  - Febrile bone marrow aplasia [Recovered/Resolved]
  - Deep vein thrombosis [Recovered/Resolved]
  - Pulmonary embolism [Recovered/Resolved]
